FAERS Safety Report 15408693 (Version 1)
Quarter: 2018Q3

REPORT INFORMATION
  Report Type: Spontaneous
  Country: US (occurrence: US)
  Receive Date: 20180920
  Receipt Date: 20180920
  Transmission Date: 20181010
  Serious: No
  Sender: FDA-Public Use
  Company Number: US-PFIZER INC-2018342603

PATIENT
  Age: 69 Year
  Sex: Female
  Weight: 96 kg

DRUGS (5)
  1. IBRANCE [Suspect]
     Active Substance: PALBOCICLIB
     Indication: BREAST CANCER METASTATIC
     Dosage: 100 MG, CYCLIC (21 DAYS CYCLE)
     Route: 048
     Dates: start: 201611
  2. LETROZOLE. [Concomitant]
     Active Substance: LETROZOLE
     Dosage: UNK
  3. VITAMIN D3 [Concomitant]
     Active Substance: CHOLECALCIFEROL
     Dosage: UNK UNK, DAILY
  4. TURMERIC [Concomitant]
     Active Substance: HERBALS\TURMERIC
     Dosage: 2 DF, DAILY
  5. SUPER B COMPLEX [Concomitant]
     Active Substance: CYANOCOBALAMIN\DEXPANTHENOL\NIACINAMIDE\PYRIDOXINE HYDROCHLORIDE\RIBOFLAVIN 5^-PHOSPHATE SODIUM\THIAMINE HYDROCHLORIDE\VITAMIN B COMPLEX
     Dosage: UNK UNK, DAILY

REACTIONS (9)
  - Muscle spasms [Unknown]
  - Weight increased [Unknown]
  - Gastric disorder [Unknown]
  - White blood cell count decreased [Unknown]
  - Abdominal pain upper [Recovering/Resolving]
  - Abdominal discomfort [Unknown]
  - Dry mouth [Unknown]
  - Ear disorder [Unknown]
  - Dry eye [Unknown]
